FAERS Safety Report 14653196 (Version 1)
Quarter: 2018Q1

REPORT INFORMATION
  Report Type: Spontaneous
  Country: US (occurrence: US)
  Receive Date: 20180319
  Receipt Date: 20180319
  Transmission Date: 20180509
  Serious: No
  Sender: FDA-Public Use
  Company Number: US-AUROBINDO-AUR-APL-2017-43381

PATIENT
  Sex: Female

DRUGS (1)
  1. LAMOTRIGINE TABLETS 100 MG [Suspect]
     Active Substance: LAMOTRIGINE
     Indication: EPILEPSY
     Dosage: 1 TABLET 6 TIMES DAILY
     Route: 048
     Dates: start: 20170731

REACTIONS (4)
  - Somnolence [Recovered/Resolved]
  - Product substitution issue [Unknown]
  - Dizziness [Recovered/Resolved]
  - Balance disorder [Recovered/Resolved]

NARRATIVE: CASE EVENT DATE: 20170731
